FAERS Safety Report 11119448 (Version 1)
Quarter: 2015Q2

REPORT INFORMATION
  Report Type: Spontaneous
  Country: DE (occurrence: DE)
  Receive Date: 20150518
  Receipt Date: 20150518
  Transmission Date: 20150821
  Serious: Yes (Other)
  Sender: FDA-Public Use
  Company Number: PHHY2015DE055188

PATIENT
  Sex: Female
  Weight: 53 kg

DRUGS (1)
  1. EXJADE [Suspect]
     Active Substance: DEFERASIROX
     Indication: IRON OVERLOAD
     Dosage: 1 G, QD (DAILY)
     Route: 065

REACTIONS (8)
  - Blood urea increased [Unknown]
  - Gastrointestinal disorder [Unknown]
  - Blood creatinine increased [Unknown]
  - Ageusia [Unknown]
  - Hyponatraemia [Unknown]
  - Hypotension [Unknown]
  - Feeling cold [Unknown]
  - Feeling abnormal [Unknown]
